FAERS Safety Report 9462971 (Version 1)
Quarter: 2013Q3

REPORT INFORMATION
  Report Type: Spontaneous
  Country: US (occurrence: US)
  Receive Date: 20130816
  Receipt Date: 20130816
  Transmission Date: 20140515
  Serious: Yes (Other)
  Sender: FDA-Public Use
  Company Number: US-UCBSA-094920

PATIENT
  Age: 32 Year
  Sex: Male

DRUGS (5)
  1. CIMZIA [Suspect]
     Indication: CROHN^S DISEASE
     Dosage: UNKNOWN
  2. CYMBALTA [Concomitant]
     Dosage: UNKNOWN
  3. REMICADE [Concomitant]
     Dosage: UNKNOWN
  4. KLONOPIN [Concomitant]
     Dosage: UNKNOWN
  5. LITHIUM [Concomitant]
     Dosage: UNKNOWN

REACTIONS (2)
  - Intestinal stenosis [Unknown]
  - Pain [Unknown]
